FAERS Safety Report 6908846-2 (Version None)
Quarter: 2010Q3

REPORT INFORMATION
  Report Type: 
  Country: None (occurrence: None)
  Receive Date: 20100708
  Receipt Date: 20100504
  Transmission Date: 20110219
  Serious: Yes (Other)
  Sender: FDA-Public Use
  Company Number: 2010055790

PATIENT
  Sex: Female
  Weight: 75.7 kg

DRUGS (5)
  1. CHANTIX [Suspect]
     Indication: SMOKING CESSATION THERAPY
     Dosage: 0.5 MG, 1X/DAY, ORAL : 1 MG, 2X/DAY, ORAL
     Route: 048
     Dates: start: 20100401
  2. LIPITOR [Concomitant]
  3. WELLBUTRIN [Concomitant]
  4. PREDNISOLONE [Concomitant]
  5. FLONASE [Concomitant]

REACTIONS (3)
  - CHEST PAIN [None]
  - PAIN IN EXTREMITY [None]
  - RASH [None]
